FAERS Safety Report 4464232-9 (Version None)
Quarter: 2004Q4

REPORT INFORMATION
  Report Type: 
  Country: None (occurrence: None)
  Receive Date: 20041001
  Receipt Date: 20040922
  Transmission Date: 20050328
  Serious: Yes (Other)
  Sender: FDA-Public Use
  Company Number: A01200402883

PATIENT

DRUGS (2)
  1. ARIXTRA [Suspect]
     Route: 065
  2. ANTICOAGULANT [Concomitant]
     Route: 048

REACTIONS (3)
  - IMPAIRED HEALING [None]
  - POST PROCEDURAL HAEMATOMA [None]
  - WOUND INFECTION [None]
